FAERS Safety Report 5975589-1 (Version None)
Quarter: 2008Q4

REPORT INFORMATION
  Report Type: 
  Country: None (occurrence: None)
  Receive Date: 20081202
  Receipt Date: 20081121
  Transmission Date: 20090506
  Serious: Yes (Other)
  Sender: FDA-Public Use
  Company Number: CA-JNJFOC-20081105527

PATIENT
  Sex: Female

DRUGS (6)
  1. TRAMACET [Suspect]
     Indication: PAIN
     Route: 048
  2. DYAZIDE [Concomitant]
     Indication: DRUG USE FOR UNKNOWN INDICATION
  3. LASIX [Concomitant]
     Indication: DRUG USE FOR UNKNOWN INDICATION
  4. REACTINE [Concomitant]
     Indication: DRUG USE FOR UNKNOWN INDICATION
  5. CALCIIUM [Concomitant]
     Indication: DRUG USE FOR UNKNOWN INDICATION
  6. VITAMIN D [Concomitant]
     Indication: DRUG USE FOR UNKNOWN INDICATION

REACTIONS (2)
  - OEDEMA [None]
  - WEIGHT INCREASED [None]
